FAERS Safety Report 8414670-4 (Version None)
Quarter: 2012Q2

REPORT INFORMATION
  Report Type: 
  Country: None (occurrence: None)
  Receive Date: 20120605
  Receipt Date: 20120529
  Transmission Date: 20120825
  Serious: Yes (Hospitalization)
  Sender: FDA-Public Use
  Company Number: JP-ABBOTT-12P-087-0937362-00

PATIENT
  Age: 55 Year
  Sex: Male

DRUGS (4)
  1. RIFAMPICIN [Concomitant]
     Indication: MYCOBACTERIUM KANSASII INFECTION
     Route: 048
  2. RIFAMPICIN [Concomitant]
  3. LEVOFLOXACIN [Concomitant]
     Indication: MYCOBACTERIUM KANSASII INFECTION
     Route: 048
  4. CLARITHROMYCIN [Suspect]
     Indication: MYCOBACTERIUM KANSASII INFECTION
     Route: 048

REACTIONS (2)
  - RENAL IMPAIRMENT [None]
  - DECREASED APPETITE [None]
